FAERS Safety Report 8157596-6 (Version None)
Quarter: 2012Q1

REPORT INFORMATION
  Report Type: 
  Country: None (occurrence: None)
  Receive Date: 20120222
  Receipt Date: 20110609
  Transmission Date: 20120608
  Serious: No
  Sender: FDA-Public Use
  Company Number: US-ASTRAZENECA-2011SE35328

PATIENT
  Age: 62 Year
  Sex: Male

DRUGS (5)
  1. LISINOPRIL [Concomitant]
  2. AUGMENTIN '125' [Concomitant]
  3. CRESTOR [Concomitant]
  4. ATENOLOL [Suspect]
     Route: 065
  5. METOPROL [Concomitant]

REACTIONS (2)
  - FATIGUE [None]
  - DRUG HYPERSENSITIVITY [None]
